FAERS Safety Report 16759046 (Version 1)
Quarter: 2019Q4

REPORT INFORMATION
  Report Type: Spontaneous
  Country: US (occurrence: US)
  Receive Date: 20190829
  Receipt Date: 20190829
  Transmission Date: 20200122
  Serious: Yes (Other)
  Sender: FDA-Public Use
  Company Number: None

PATIENT
  Age: 43 Year
  Sex: Female

DRUGS (2)
  1. CHLORHEXADINE WIPES [Suspect]
     Active Substance: CHLORHEXIDINE
     Indication: INFECTION PROPHYLAXIS
     Dosage: ?          OTHER STRENGTH:WIPES;QUANTITY:1 WIPES;OTHER FREQUENCY:JUST THAT ONE TIME;?
     Route: 061
  2. ARMOUR THYROID [Concomitant]
     Active Substance: THYROID, PORCINE

REACTIONS (6)
  - Dizziness [None]
  - Patient dissatisfaction with treatment [None]
  - Application site pruritus [None]
  - Pruritus [None]
  - Drug hypersensitivity [None]
  - Urticaria [None]

NARRATIVE: CASE EVENT DATE: 20140301
